FAERS Safety Report 10156975 (Version 1)
Quarter: 2014Q2

REPORT INFORMATION
  Report Type: Spontaneous
  Country: US (occurrence: US)
  Receive Date: 20140507
  Receipt Date: 20140507
  Transmission Date: 20141212
  Serious: Yes (Hospitalization, Other)
  Sender: FDA-Public Use
  Company Number: US-AMGEN-USASP2014032171

PATIENT
  Age: 63 Year
  Sex: Female

DRUGS (2)
  1. ENBREL [Suspect]
     Indication: RHEUMATOID ARTHRITIS
     Dosage: 50 MG, QWK
     Route: 065
     Dates: start: 20130708, end: 201403
  2. METHOTREXATE [Concomitant]
     Dosage: 10 MG (2.5MG) TABLETS WEEKLY
     Route: 048
     Dates: start: 2009, end: 201404

REACTIONS (2)
  - Dyspnoea [Recovered/Resolved]
  - Pneumothorax [Recovered/Resolved]
